FAERS Safety Report 19690657 (Version 1)
Quarter: 2021Q3

REPORT INFORMATION
  Report Type: Spontaneous
  Country: US (occurrence: US)
  Receive Date: 20210812
  Receipt Date: 20210812
  Transmission Date: 20211014
  Serious: No
  Sender: FDA-Public Use
  Company Number: US-GLENMARK PHARMACEUTICALS-2020GMK049275

PATIENT

DRUGS (1)
  1. TELMISARTAN TABLETS USP, 20 MG [Suspect]
     Active Substance: TELMISARTAN
     Indication: HYPERTENSION
     Dosage: 20 MILLIGRAM, HS (ONCE TIME IN EVENING)
     Route: 048
     Dates: start: 2020

REACTIONS (4)
  - Product primary packaging issue [Unknown]
  - Product administration error [Unknown]
  - Product storage error [Unknown]
  - No adverse event [Unknown]

NARRATIVE: CASE EVENT DATE: 2020
